FAERS Safety Report 12982361 (Version 1)
Quarter: 2016Q4

REPORT INFORMATION
  Report Type: Spontaneous
  Country: US (occurrence: US)
  Receive Date: 20161128
  Receipt Date: 20161128
  Transmission Date: 20170207
  Serious: Yes (Life-Threatening, Hospitalization)
  Sender: FDA-Public Use
  Company Number: None

PATIENT
  Age: 59 Year
  Sex: Male
  Weight: 79.2 kg

DRUGS (4)
  1. OMEPRAZOL [Concomitant]
     Active Substance: OMEPRAZOLE
  2. ROFLUMILAST [Suspect]
     Active Substance: ROFLUMILAST
     Indication: CHRONIC OBSTRUCTIVE PULMONARY DISEASE
     Dosage: ?          QUANTITY:1 TABLET(S);?
     Route: 048
     Dates: start: 20161015, end: 20161128
  3. REVLIMID [Concomitant]
     Active Substance: LENALIDOMIDE
  4. ASPRIN [Concomitant]
     Active Substance: ASPIRIN

REACTIONS (7)
  - Nausea [None]
  - Pyrexia [None]
  - Fatigue [None]
  - Diarrhoea [None]
  - Decreased appetite [None]
  - Pneumonia [None]
  - Dyspnoea [None]

NARRATIVE: CASE EVENT DATE: 20161123
